FAERS Safety Report 5047407-X (Version None)
Quarter: 2006Q3

REPORT INFORMATION
  Report Type: 
  Country: None (occurrence: None)
  Receive Date: 20060703
  Receipt Date: 20060621
  Transmission Date: 20061208
  Serious: Yes (Hospitalization, Other)
  Sender: FDA-Public Use
  Company Number: 2006078778

PATIENT
  Sex: Female
  Weight: 52.1637 kg

DRUGS (4)
  1. ZOLOFT [Suspect]
     Indication: HOT FLUSH
     Dosage: 50 MG (50 MG, 1 IN 1 D)
  2. ZYPREXA [Suspect]
     Dates: start: 20050801, end: 20050101
  3. RISPERDAL [Suspect]
     Dates: start: 20050801, end: 20050101
  4. MOTRIN [Concomitant]

REACTIONS (11)
  - DEHYDRATION [None]
  - DEPRESSION [None]
  - DIARRHOEA [None]
  - DRUG ABUSER [None]
  - FLATULENCE [None]
  - HYPOTENSION [None]
  - INCONTINENCE [None]
  - MUSCLE SPASMS [None]
  - PARAESTHESIA [None]
  - THROMBOSIS [None]
  - WEIGHT DECREASED [None]
